FAERS Safety Report 9505841 (Version 1)
Quarter: 2013Q1

REPORT INFORMATION
  Report Type: Spontaneous
  Country: US (occurrence: None)
  Receive Date: 20130219
  Receipt Date: 20130219
  Transmission Date: 20140127
  Serious: Yes (Disabling)
  Sender: FDA-Public Use
  Company Number: 1204USA01906

PATIENT
  Sex: Male

DRUGS (4)
  1. ZOCOR [Suspect]
     Route: 048
     Dates: start: 2007
  2. MK-0431D (SITAGLIPTIN PHOSPHATE (+) SIMVASTATIN) [Concomitant]
  3. LIORAM (ZOLPIDEM TARTRATE) [Concomitant]
  4. SIMVASTATIN (SIMVASTATIN) [Concomitant]

REACTIONS (1)
  - Neuropathy peripheral [None]
